FAERS Safety Report 7420868-4 (Version None)
Quarter: 2011Q2

REPORT INFORMATION
  Report Type: 
  Country: None (occurrence: None)
  Receive Date: 20110418
  Receipt Date: 20110408
  Transmission Date: 20111010
  Serious: Yes (Other)
  Sender: FDA-Public Use
  Company Number: BE-ROCHE-770629

PATIENT
  Sex: Male
  Weight: 70 kg

DRUGS (6)
  1. MIXTARD 30 HM [Concomitant]
     Dosage: DOSE: 21 U. TDD: 63 U.
     Route: 058
  2. PANTOMED [Concomitant]
     Indication: ILL-DEFINED DISORDER
     Route: 048
  3. PEGINTERFERON ALFA-2A [Suspect]
     Route: 058
     Dates: start: 20110223, end: 20110225
  4. COPEGUS [Concomitant]
     Indication: HEPATITIS C
     Route: 048
     Dates: start: 20110223, end: 20110225
  5. DAFALGAN [Concomitant]
     Route: 048
     Dates: start: 20110223
  6. INDERAL [Concomitant]
     Route: 048

REACTIONS (1)
  - FEBRILE NEUTROPENIA [None]
